FAERS Safety Report 10869283 (Version 2)
Quarter: 2016Q2

REPORT INFORMATION
  Report Type: Spontaneous
  Country: US (occurrence: US)
  Receive Date: 20150226
  Receipt Date: 20160601
  Transmission Date: 20160815
  Serious: No
  Sender: FDA-Public Use
  Company Number: US-009507513-1502USA008934

PATIENT
  Age: 67 Year
  Sex: Male
  Weight: 69.39 kg

DRUGS (4)
  1. BELSOMRA [Suspect]
     Active Substance: SUVOREXANT
     Dosage: 30 MG DASAGE
     Route: 048
  2. BELSOMRA [Suspect]
     Active Substance: SUVOREXANT
     Indication: INSOMNIA
     Dosage: 10 MG BELSOMRA TABLET FOLLOWED BY ANOTHER 10 MG BELSOMRA TABLET AN HOUR 1 AFTER
     Route: 048
     Dates: start: 20150206, end: 20150206
  3. BELSOMRA [Suspect]
     Active Substance: SUVOREXANT
     Dosage: TOOK 3 10 MG BELSOMRA TABLETS ALL AT ONCE
     Route: 048
     Dates: start: 20150207, end: 20150207
  4. BELSOMRA [Suspect]
     Active Substance: SUVOREXANT
     Indication: INSOMNIA
     Dosage: 20 MG, ONCE DAILY
     Route: 048
     Dates: start: 20160515

REACTIONS (5)
  - Overdose [Unknown]
  - Drug ineffective [Unknown]
  - Drug ineffective [Unknown]
  - Inappropriate schedule of drug administration [Unknown]
  - Intentional overdose [Unknown]

NARRATIVE: CASE EVENT DATE: 20150206
